FAERS Safety Report 7916188-1 (Version None)
Quarter: 2011Q4

REPORT INFORMATION
  Report Type: 
  Country: None (occurrence: None)
  Receive Date: 20111116
  Receipt Date: 20111108
  Transmission Date: 20120403
  Serious: No
  Sender: FDA-Public Use
  Company Number: US-BIOGENIDEC-2010BI032558

PATIENT
  Sex: Male

DRUGS (2)
  1. TYSABRI [Suspect]
     Indication: MULTIPLE SCLEROSIS
     Route: 042
     Dates: start: 20081203
  2. MEDICATIONS (NOS) [Concomitant]

REACTIONS (12)
  - PAIN IN EXTREMITY [None]
  - DEHYDRATION [None]
  - MEMORY IMPAIRMENT [None]
  - HEPATIC ENZYME INCREASED [None]
  - INSOMNIA [None]
  - HYPOAESTHESIA [None]
  - ASPARTATE AMINOTRANSFERASE INCREASED [None]
  - MULTIPLE SCLEROSIS RELAPSE [None]
  - ALANINE AMINOTRANSFERASE INCREASED [None]
  - POOR QUALITY SLEEP [None]
  - ARTHRALGIA [None]
  - MYALGIA [None]
